FAERS Safety Report 11641951 (Version 1)
Quarter: 2015Q4

REPORT INFORMATION
  Report Type: Spontaneous
  Country: DK (occurrence: DK)
  Receive Date: 20151019
  Receipt Date: 20151019
  Transmission Date: 20160304
  Serious: Yes (Life-Threatening)
  Sender: FDA-Public Use
  Company Number: DK-ABBVIE-15P-044-1484266-00

PATIENT
  Age: 22 Year
  Sex: Female
  Weight: 71 kg

DRUGS (2)
  1. CITALOPRAM [Suspect]
     Active Substance: CITALOPRAM HYDROBROMIDE
     Indication: DEPRESSION
     Route: 065
     Dates: start: 20141201, end: 20150517
  2. KLACID [Suspect]
     Active Substance: CLARITHROMYCIN
     Indication: GENITAL INFECTION
     Route: 065
     Dates: start: 20150513, end: 20150517

REACTIONS (5)
  - Implantable defibrillator insertion [Recovered/Resolved]
  - Cardioversion [Recovered/Resolved]
  - Cardiac arrest [Recovered/Resolved]
  - Electrocardiogram QT prolonged [Recovered/Resolved]
  - Ventricular fibrillation [Recovered/Resolved]

NARRATIVE: CASE EVENT DATE: 2015
